FAERS Safety Report 8142463-4 (Version None)
Quarter: 2012Q1

REPORT INFORMATION
  Report Type: 
  Country: None (occurrence: None)
  Receive Date: 20120216
  Receipt Date: 20120213
  Transmission Date: 20120608
  Serious: Yes (Hospitalization)
  Sender: FDA-Public Use
  Company Number: BR-ABBOTT-10P-020-0662756-00

PATIENT
  Sex: Female
  Weight: 60 kg

DRUGS (8)
  1. PREDNISONE TAB [Concomitant]
     Indication: CROHN'S DISEASE
     Route: 048
     Dates: start: 19970101, end: 20090101
  2. HUMIRA [Suspect]
     Indication: CROHN'S DISEASE
     Dosage: INDUCTION DOSE
     Route: 058
     Dates: start: 20100407
  3. HUMIRA [Suspect]
     Route: 058
     Dates: start: 20111017
  4. OMEPRAZOLE [Concomitant]
     Indication: GASTRITIS
     Dosage: FASTING
     Route: 048
     Dates: start: 19970101
  5. ALPRAZOLAM [Concomitant]
     Indication: SLEEP DISORDER THERAPY
     Route: 048
  6. HUMIRA [Suspect]
     Dosage: INDUCTION DOSE
     Route: 058
  7. HUMIRA [Suspect]
     Route: 058
  8. VENLAFAXINE [Concomitant]
     Indication: ANTIDEPRESSANT THERAPY
     Route: 048

REACTIONS (5)
  - INTESTINAL STENOSIS [None]
  - ABDOMINAL PAIN [None]
  - DIARRHOEA [None]
  - DRUG INEFFECTIVE [None]
  - WEIGHT DECREASED [None]
